FAERS Safety Report 12644723 (Version 1)
Quarter: 2016Q3

REPORT INFORMATION
  Report Type: Spontaneous
  Country: US (occurrence: US)
  Receive Date: 20160811
  Receipt Date: 20160811
  Transmission Date: 20161109
  Serious: No
  Sender: FDA-Public Use
  Company Number: US-PFIZER INC-2016361191

PATIENT
  Age: 75 Year
  Sex: Male
  Weight: 65.76 kg

DRUGS (1)
  1. FOLIC ACID. [Suspect]
     Active Substance: FOLIC ACID
     Indication: ARTHRITIS
     Dosage: 1MG, ONCE A DAY IN THE MORNING
     Route: 048

REACTIONS (2)
  - Weight decreased [Unknown]
  - Product use issue [Unknown]
